FAERS Safety Report 16051780 (Version 2)
Quarter: 2019Q1

REPORT INFORMATION
  Report Type: Report from Study
  Country: PL (occurrence: PL)
  Receive Date: 20190308
  Receipt Date: 20190308
  Transmission Date: 20190418
  Serious: Yes (Other)
  Sender: FDA-Public Use
  Company Number: PL-PFIZER INC-2019099938

PATIENT

DRUGS (2)
  1. SERTRALINE HCL [Suspect]
     Active Substance: SERTRALINE HYDROCHLORIDE
     Dosage: UNK
  2. PANAX GINSENG [Interacting]
     Active Substance: ASIAN GINSENG
     Dosage: UNK

REACTIONS (2)
  - Herbal interaction [Unknown]
  - Ventricular arrhythmia [Unknown]
